FAERS Safety Report 8687198 (Version 2)
Quarter: 2013Q4

REPORT INFORMATION
  Report Type: Report from Study
  Country: US (occurrence: US)
  Receive Date: 20120727
  Receipt Date: 20131021
  Transmission Date: 20140711
  Serious: Yes (Hospitalization)
  Sender: FDA-Public Use
  Company Number: US-UCBSA-028175

PATIENT
  Age: 42 Year
  Sex: Male
  Weight: 54 kg

DRUGS (5)
  1. CIMZIA [Suspect]
     Indication: CROHN^S DISEASE
     Dosage: 1 DOSE
     Route: 058
     Dates: start: 20100907, end: 20110310
  2. OXYCODONE [Concomitant]
     Dosage: 5 MG TABLET EVERY 2 HOUR
  3. PREDNISONE [Concomitant]
     Indication: CROHN^S DISEASE
     Dates: start: 20090728, end: 200909
  4. PREDNISONE [Concomitant]
     Indication: CROHN^S DISEASE
     Dosage: 30 MG A DAY
  5. MULTIVITAMINS [Concomitant]

REACTIONS (1)
  - Crohn^s disease [Recovered/Resolved]
